FAERS Safety Report 8550980-8 (Version None)
Quarter: 2012Q3

REPORT INFORMATION
  Report Type: 
  Country: None (occurrence: None)
  Receive Date: 20120730
  Receipt Date: 20111207
  Transmission Date: 20120928
  Serious: No
  Sender: FDA-Public Use
  Company Number: US-ALLERGAN-1115986US

PATIENT
  Sex: Female

DRUGS (3)
  1. LUMIGAN [Suspect]
     Indication: GLAUCOMA
     Dosage: 2 GTT, QAM
     Route: 047
  2. NEW EYE DROP [Concomitant]
  3. REFRESH PLUS [Suspect]
     Indication: DRY EYE
     Dosage: 1 GTT, QD

REACTIONS (1)
  - DRUG INTERACTION [None]
